FAERS Safety Report 8555107-4 (Version None)
Quarter: 2012Q3

REPORT INFORMATION
  Report Type: 
  Country: None (occurrence: None)
  Receive Date: 20120731
  Receipt Date: 20120727
  Transmission Date: 20120928
  Serious: Yes (Hospitalization)
  Sender: FDA-Public Use
  Company Number: JP-PFIZER INC-2012183575

PATIENT
  Age: 81 Year
  Sex: Female

DRUGS (1)
  1. LYRICA [Suspect]
     Dosage: 150 MG, 2X/DAY
     Route: 048
     Dates: start: 20120720

REACTIONS (2)
  - DIZZINESS [None]
  - FALL [None]
